FAERS Safety Report 8143489-7 (Version None)
Quarter: 2012Q1

REPORT INFORMATION
  Report Type: 
  Country: None (occurrence: None)
  Receive Date: 20120217
  Receipt Date: 20120213
  Transmission Date: 20120608
  Serious: No
  Sender: FDA-Public Use
  Company Number: US-PFIZER INC-2012039335

PATIENT
  Sex: Female

DRUGS (1)
  1. AMLODIPINE BESYLATE [Suspect]
     Dosage: 2.5 MG, UNK

REACTIONS (6)
  - FEELING ABNORMAL [None]
  - BEDRIDDEN [None]
  - FATIGUE [None]
  - BLOOD PRESSURE INCREASED [None]
  - ASTHENIA [None]
  - SPEECH DISORDER [None]
